FAERS Safety Report 17986273 (Version 3)
Quarter: 2020Q4

REPORT INFORMATION
  Report Type: Report from Study
  Country: CA (occurrence: CA)
  Receive Date: 20200707
  Receipt Date: 20201030
  Transmission Date: 20210113
  Serious: Yes (Other)
  Sender: FDA-Public Use
  Company Number: CA-UCBSA-2020022106

PATIENT
  Sex: Female

DRUGS (2)
  1. CERTOLIZUMAB PEGOL AUTOCLICKS [Suspect]
     Active Substance: CERTOLIZUMAB PEGOL
     Indication: RHEUMATOID ARTHRITIS
     Dosage: 400 MILLIGRAM, EV 2 WEEKS(QOW)
     Route: 058
     Dates: start: 20200504, end: 20200531
  2. CERTOLIZUMAB PEGOL AUTOCLICKS [Suspect]
     Active Substance: CERTOLIZUMAB PEGOL
     Dosage: 200 MILLIGRAM, EV 2 WEEKS(QOW)
     Route: 058
     Dates: start: 2020, end: 20201019

REACTIONS (8)
  - Pain in extremity [Unknown]
  - Vomiting [Unknown]
  - Injection site swelling [Unknown]
  - Injection site erythema [Unknown]
  - Hot flush [Unknown]
  - Nausea [Unknown]
  - Drug ineffective [Unknown]
  - Kidney infection [Unknown]

NARRATIVE: CASE EVENT DATE: 2020
